FAERS Safety Report 22303641 (Version 2)
Quarter: 2023Q2

REPORT INFORMATION
  Report Type: Spontaneous
  Country: AU (occurrence: AU)
  Receive Date: 20230510
  Receipt Date: 20230517
  Transmission Date: 20230722
  Serious: Yes (Death, Life-Threatening, Hospitalization, Other)
  Sender: FDA-Public Use
  Company Number: AU-AMGEN-AUSSP2023075784

PATIENT

DRUGS (14)
  1. FILGRASTIM [Suspect]
     Active Substance: FILGRASTIM
     Indication: Prophylaxis
     Dosage: UNK
     Route: 065
  2. DOXORUBICIN [Concomitant]
     Active Substance: DOXORUBICIN
  3. BLEOMYCIN [Concomitant]
     Active Substance: BLEOMYCIN SULFATE
  4. VINBLASTINE [Concomitant]
     Active Substance: VINBLASTINE
  5. DACARBAZINE [Concomitant]
     Active Substance: DACARBAZINE
  6. ETOPOSIDE [Concomitant]
     Active Substance: ETOPOSIDE
  7. CYCLOPHOSPHAMIDE [Concomitant]
     Active Substance: CYCLOPHOSPHAMIDE
  8. VINCRISTINE [Concomitant]
     Active Substance: VINCRISTINE
  9. PREDNISONE [Concomitant]
     Active Substance: PREDNISONE
  10. GEMCITABINE [Concomitant]
     Active Substance: GEMCITABINE
  11. PROCARBAZINE [Concomitant]
     Active Substance: PROCARBAZINE
  12. CHLORAMBUCIL [Concomitant]
     Active Substance: CHLORAMBUCIL
  13. IFOSFAMIDE [Concomitant]
     Active Substance: IFOSFAMIDE
  14. VINORELBINE [Concomitant]
     Active Substance: VINORELBINE TARTRATE

REACTIONS (18)
  - Toxicity to various agents [Fatal]
  - Death [Fatal]
  - Infection [Fatal]
  - Acute myeloid leukaemia [Fatal]
  - Hodgkin^s disease recurrent [Fatal]
  - Hodgkin^s disease [Fatal]
  - Neoplasm [Fatal]
  - Cardiac failure [Fatal]
  - Pneumonitis [Unknown]
  - Pulmonary toxicity [Unknown]
  - Unevaluable event [Unknown]
  - Fall [Unknown]
  - General physical health deterioration [Unknown]
  - Cardiomyopathy [Unknown]
  - Richter^s syndrome [Unknown]
  - Nausea [Unknown]
  - Vomiting [Unknown]
  - Therapy partial responder [Unknown]
